FAERS Safety Report 13284726 (Version 1)
Quarter: 2017Q1

REPORT INFORMATION
  Report Type: Spontaneous
  Country: US (occurrence: US)
  Receive Date: 20170227
  Receipt Date: 20170227
  Transmission Date: 20170428
  Serious: Yes (Life-Threatening)
  Sender: FDA-Public Use
  Company Number: None

PATIENT
  Age: 59 Year
  Sex: Male
  Weight: 103.2 kg

DRUGS (1)
  1. EPINEPHRINE/LIDOCAINE [Suspect]
     Active Substance: EPINEPHRINE\LIDOCAINE
     Indication: SURGERY
     Dates: start: 20160829, end: 20160929

REACTIONS (1)
  - Tremor [None]

NARRATIVE: CASE EVENT DATE: 20160906
